FAERS Safety Report 9310367 (Version 1)
Quarter: 2013Q2

REPORT INFORMATION
  Report Type: Spontaneous
  Country: US (occurrence: US)
  Receive Date: 20130527
  Receipt Date: 20130527
  Transmission Date: 20140414
  Serious: Yes (Other)
  Sender: FDA-Public Use
  Company Number: US-BRISTOL-MYERS SQUIBB COMPANY-18906578

PATIENT
  Sex: Female

DRUGS (3)
  1. BYDUREON 2MG SUSPENSION [Suspect]
  2. VICTOZA [Concomitant]
  3. METFORMIN [Concomitant]

REACTIONS (1)
  - Impaired gastric emptying [Not Recovered/Not Resolved]
